FAERS Safety Report 9326926 (Version 1)
Quarter: 2013Q2

REPORT INFORMATION
  Report Type: Spontaneous
  Country: US (occurrence: US)
  Receive Date: 20130604
  Receipt Date: 20130604
  Transmission Date: 20140414
  Serious: No
  Sender: FDA-Public Use
  Company Number: US-AMGEN-USASP2013032448

PATIENT
  Age: 31 Year
  Sex: Female

DRUGS (1)
  1. ENBREL [Suspect]
     Indication: PSORIASIS
     Dosage: UNK UNK, QWK
     Dates: start: 20070711, end: 201303

REACTIONS (2)
  - Skin plaque [Not Recovered/Not Resolved]
  - Condition aggravated [Not Recovered/Not Resolved]
